FAERS Safety Report 24833378 (Version 4)
Quarter: 2025Q2

REPORT INFORMATION
  Report Type: Spontaneous
  Country: US (occurrence: US)
  Receive Date: 20250111
  Receipt Date: 20250605
  Transmission Date: 20250716
  Serious: Yes (Hospitalization)
  Sender: SANOFI AVENTIS
  Company Number: US-SA-2025SA009324

PATIENT
  Age: 70 Year
  Sex: Male

DRUGS (4)
  1. DUPIXENT [Suspect]
     Active Substance: DUPILUMAB
     Indication: Asthma
     Dosage: 300 MG, QOW
     Route: 058
     Dates: start: 20210412
  2. DUPIXENT [Suspect]
     Active Substance: DUPILUMAB
     Indication: Asthma
     Dosage: 300 MG, QOW
     Route: 058
     Dates: start: 20220426
  3. BIOTIN [Concomitant]
     Active Substance: BIOTIN
  4. ZINC [Concomitant]
     Active Substance: ZINC

REACTIONS (7)
  - Surgery [Unknown]
  - Impaired quality of life [Unknown]
  - Oral herpes [Unknown]
  - Asthma [Unknown]
  - Drug ineffective [Unknown]
  - Injection site reaction [Unknown]
  - Injection site pain [Unknown]
